FAERS Safety Report 24570016 (Version 2)
Quarter: 2024Q4

REPORT INFORMATION
  Report Type: Spontaneous
  Country: US (occurrence: US)
  Receive Date: 20241031
  Receipt Date: 20241230
  Transmission Date: 20250115
  Serious: Yes (Other)
  Sender: APELLIS PHARMACEUTICALS
  Company Number: US-APELLIS PHARMACEUTICALS-APL-2023-003081

PATIENT
  Weight: 77.1 kg

DRUGS (5)
  1. SYFOVRE [Suspect]
     Active Substance: PEGCETACOPLAN
     Indication: Dry age-related macular degeneration
     Dosage: UNK, OS
     Route: 031
     Dates: start: 20230922, end: 20230922
  2. SYFOVRE [Suspect]
     Active Substance: PEGCETACOPLAN
     Indication: Stargardt^s disease
  3. IZERVAY [Suspect]
     Active Substance: AVACINCAPTAD PEGOL SODIUM
     Indication: Dry age-related macular degeneration
     Dosage: UNK OD
     Dates: start: 20230926
  4. ONDANSETRON [Concomitant]
     Active Substance: ONDANSETRON
     Indication: Product used for unknown indication
  5. OMEPRAZOLE [Concomitant]
     Active Substance: OMEPRAZOLE
     Indication: Product used for unknown indication
     Dosage: 1 CAPSULE BY ORAL ROUTE EVERY DAY BEFORE A MEAL
     Route: 048

REACTIONS (14)
  - Retinal ischaemia [Unknown]
  - Glaucoma [Unknown]
  - Retinal occlusive vasculitis [Recovering/Resolving]
  - Retinal vasculitis [Recovering/Resolving]
  - Hypotony of eye [Unknown]
  - Vitritis [Unknown]
  - Vitritis [Unknown]
  - Eye pain [Unknown]
  - Ocular hypertension [Not Recovered/Not Resolved]
  - Corneal oedema [Unknown]
  - Diarrhoea [Recovered/Resolved]
  - Off label use [Unknown]
  - Blindness unilateral [Unknown]
  - Choroiditis [Unknown]

NARRATIVE: CASE EVENT DATE: 20231001
